FAERS Safety Report 16944251 (Version 2)
Quarter: 2019Q4

REPORT INFORMATION
  Report Type: Report from Study
  Country: AU (occurrence: AU)
  Receive Date: 20191022
  Receipt Date: 20191029
  Transmission Date: 20200122
  Serious: Yes (Hospitalization)
  Sender: FDA-Public Use
  Company Number: AU-BRISTOL-MYERS SQUIBB COMPANY-BMS-2019-100643

PATIENT
  Age: 70 Year
  Sex: Female

DRUGS (9)
  1. XARELTO [Concomitant]
     Active Substance: RIVAROXABAN
     Indication: PROPHYLAXIS
     Dosage: 15 MILLIGRAM
     Route: 048
     Dates: start: 2014
  2. IPILIMUMAB [Suspect]
     Active Substance: IPILIMUMAB
     Indication: RENAL CELL CARCINOMA
     Dosage: 65 MILLIGRAM
     Route: 065
     Dates: start: 20190905
  3. OLMESARTAN [Concomitant]
     Active Substance: OLMESARTAN
     Indication: HYPERTENSION
     Dosage: 40 MILLIGRAM
     Route: 048
     Dates: start: 200807, end: 20191018
  4. SOTALOL. [Concomitant]
     Active Substance: SOTALOL
     Indication: HYPERTENSION
     Dosage: 160 MILLIGRAM
     Route: 048
     Dates: start: 2014
  5. LERCANIDIPINE [Concomitant]
     Active Substance: LERCANIDIPINE
     Indication: HYPERTENSION
     Dosage: 20 MILLIGRAM
     Route: 048
     Dates: start: 2011
  6. METOCLOPRAMID [METOCLOPRAMIDE] [Concomitant]
     Active Substance: METOCLOPRAMIDE
     Indication: NAUSEA
     Dosage: 30 MILLIGRAM
     Route: 048
     Dates: start: 20190918
  7. PARACETAMOL [Concomitant]
     Active Substance: ACETAMINOPHEN
     Indication: HEADACHE
     Dosage: 1 GRAM, PRN
     Route: 048
  8. NIVOLUMAB [Suspect]
     Active Substance: NIVOLUMAB
     Indication: RENAL CELL CARCINOMA
     Dosage: 240 MILLIGRAM
     Route: 065
     Dates: start: 20181011
  9. MAGNESIUM [Concomitant]
     Active Substance: MAGNESIUM
     Indication: MINERAL SUPPLEMENTATION
     Dosage: 1 DOSAGE FORM
     Route: 048
     Dates: start: 2014

REACTIONS (3)
  - Headache [Recovering/Resolving]
  - Dizziness [Recovering/Resolving]
  - Orthostatic hypotension [Recovered/Resolved]

NARRATIVE: CASE EVENT DATE: 20191004
